FAERS Safety Report 10844760 (Version 1)
Quarter: 2015Q1

REPORT INFORMATION
  Report Type: Spontaneous
  Country: CN (occurrence: CN)
  Receive Date: 20150220
  Receipt Date: 20150220
  Transmission Date: 20150721
  Serious: Yes (Other)
  Sender: FDA-Public Use
  Company Number: CN-PFIZER INC-2015054344

PATIENT
  Age: 59 Year
  Sex: Female

DRUGS (2)
  1. NOVASTAN [Suspect]
     Active Substance: ARGATROBAN
     Indication: COAGULOPATHY
     Dosage: 5 MG, 2X/DAY, 10 MG (5 MG,2 IN 1 D)
     Route: 041
     Dates: start: 20120717, end: 20120722
  2. CEFTIZOXIME SODIUM [Concomitant]
     Active Substance: CEFTIZOXIME SODIUM
     Dosage: UNK
     Route: 041
     Dates: start: 20120717, end: 20120722

REACTIONS (3)
  - Muscle spasms [Recovered/Resolved]
  - Blood pressure increased [Recovered/Resolved]
  - Syncope [Recovered/Resolved]

NARRATIVE: CASE EVENT DATE: 20120722
